FAERS Safety Report 5441583-2 (Version None)
Quarter: 2007Q3

REPORT INFORMATION
  Report Type: 
  Country: None (occurrence: None)
  Receive Date: 20070723
  Receipt Date: 20070723
  Transmission Date: 20080115
  Serious: Yes (Death, Life-Threatening, Hospitalization, Disabling, Other)
  Sender: FDA-Public Use
  Company Number: None

PATIENT

DRUGS (1)
  1. PHOSPHATIDAL COLEEN DEOXYCOLATE/PCDC [Suspect]
     Indication: ILL-DEFINED DISORDER
     Dosage: 9-06 AND BEFORE
     Dates: start: 20060901

REACTIONS (8)
  - LOSS OF CONSCIOUSNESS [None]
  - MASS [None]
  - NEOPLASM MALIGNANT [None]
  - PHARMACEUTICAL PRODUCT COMPLAINT [None]
  - SKIN DISCOLOURATION [None]
  - URTICARIA [None]
  - VOMITING [None]
  - WOUND [None]
